FAERS Safety Report 6890481-6 (Version None)
Quarter: 2010Q3

REPORT INFORMATION
  Report Type: 
  Country: None (occurrence: None)
  Receive Date: 20100731
  Receipt Date: 20081107
  Transmission Date: 20110219
  Serious: No
  Sender: FDA-Public Use
  Company Number: US-PFIZER INC-2008083396

PATIENT
  Sex: Female

DRUGS (2)
  1. LIPITOR [Suspect]
  2. ANASTROZOLE [Concomitant]

REACTIONS (1)
  - ALOPECIA [None]
